FAERS Safety Report 12347138 (Version 1)
Quarter: 2016Q2

REPORT INFORMATION
  Report Type: Spontaneous
  Country: US (occurrence: US)
  Receive Date: 20160509
  Receipt Date: 20160509
  Transmission Date: 20160815
  Serious: Yes (Other)
  Sender: FDA-Public Use
  Company Number: US-ELI_LILLY_AND_COMPANY-US201605000177

PATIENT
  Age: 66 Year
  Sex: Female

DRUGS (2)
  1. HUMULIN 70/30 [Suspect]
     Active Substance: INSULIN HUMAN
     Dosage: 23 U, EACH EVENING
     Route: 065
     Dates: start: 2012
  2. HUMULIN 70/30 [Suspect]
     Active Substance: INSULIN HUMAN
     Indication: TYPE 2 DIABETES MELLITUS
     Dosage: 20 U, EACH MORNING
     Route: 065
     Dates: start: 2012

REACTIONS (5)
  - Drug ineffective [Unknown]
  - Renal failure [Unknown]
  - Blood glucose increased [Unknown]
  - Drug dose omission [Unknown]
  - Hypertension [Unknown]

NARRATIVE: CASE EVENT DATE: 201504
